FAERS Safety Report 20475493 (Version 1)
Quarter: 2022Q1

REPORT INFORMATION
  Report Type: Spontaneous
  Country: JP (occurrence: JP)
  Receive Date: 20220215
  Receipt Date: 20220215
  Transmission Date: 20220423
  Serious: Yes (Death, Hospitalization, Other)
  Sender: FDA-Public Use
  Company Number: JP-MSD-2111JPN000966JAA

PATIENT
  Sex: Male
  Weight: 32 kg

DRUGS (3)
  1. KEYTRUDA [Suspect]
     Active Substance: PEMBROLIZUMAB
     Indication: Hypopharyngeal cancer stage IV
     Dosage: 200 MILLIGRAM, Q3W
     Route: 041
     Dates: start: 20210316, end: 20210406
  2. ELNEOPA NF NO.1 [Concomitant]
     Dosage: 1000 MILLILITER, QD
     Route: 041
     Dates: start: 20210416, end: 20210417
  3. ELNEOPA NF NO.1 [Concomitant]
     Dosage: 1500 MILLILITER, QD
     Route: 041
     Dates: start: 20210418, end: 20210418

REACTIONS (4)
  - Malignant neoplasm progression [Fatal]
  - Interstitial lung disease [Unknown]
  - Pneumocystis jirovecii pneumonia [Unknown]
  - Infected neoplasm [Unknown]

NARRATIVE: CASE EVENT DATE: 20210101
